FAERS Safety Report 16377683 (Version 1)
Quarter: 2019Q2

REPORT INFORMATION
  Report Type: Spontaneous
  Country: US (occurrence: US)
  Receive Date: 20190425
  Receipt Date: 20190425
  Transmission Date: 20190711
  Serious: Yes (Hospitalization)
  Sender: FDA-Public Use
  Company Number: None

PATIENT
  Sex: Female

DRUGS (1)
  1. CAPECITABINE. [Suspect]
     Active Substance: CAPECITABINE
     Indication: COLON CANCER
     Route: 048
     Dates: start: 20190221

REACTIONS (7)
  - Peripheral swelling [None]
  - Skin discolouration [None]
  - Oral mucosal blistering [None]
  - Atrial fibrillation [None]
  - Stomatitis [None]
  - Hypotension [None]
  - Heart rate increased [None]
